FAERS Safety Report 15216172 (Version 1)
Quarter: 2018Q3

REPORT INFORMATION
  Report Type: Spontaneous
  Country: US (occurrence: US)
  Receive Date: 20180730
  Receipt Date: 20180730
  Transmission Date: 20181010
  Serious: Yes (Life-Threatening)
  Sender: FDA-Public Use
  Company Number: PHHY2018US052422

PATIENT
  Age: 35 Year
  Sex: Male

DRUGS (2)
  1. AMIODARONE [Suspect]
     Active Substance: AMIODARONE
     Indication: VENTRICULAR TACHYCARDIA
     Dosage: 200 MG, QD
     Route: 065
  2. MILRINON ABCUR [Concomitant]
     Indication: TACHYCARDIA
     Route: 065

REACTIONS (3)
  - Nausea [Unknown]
  - Dyspnoea [Unknown]
  - Thyroiditis [Unknown]
